FAERS Safety Report 5811109-X (Version None)
Quarter: 2008Q3

REPORT INFORMATION
  Report Type: 
  Country: None (occurrence: None)
  Receive Date: 20080716
  Receipt Date: 20080707
  Transmission Date: 20090109
  Serious: Yes (Other)
  Sender: FDA-Public Use
  Company Number: US-JNJFOC-20080701709

PATIENT
  Sex: Female

DRUGS (2)
  1. REMICADE [Suspect]
     Indication: CROHN'S DISEASE
     Route: 042
  2. PREDNISONE TAB [Concomitant]
     Dosage: PRN

REACTIONS (6)
  - BONE PAIN [None]
  - FLUSHING [None]
  - LETHARGY [None]
  - LYMPHADENOPATHY [None]
  - NAUSEA [None]
  - PYREXIA [None]
